FAERS Safety Report 9726615 (Version 1)
Quarter: 2013Q4

REPORT INFORMATION
  Report Type: Spontaneous
  Country: CH (occurrence: CH)
  Receive Date: 20131203
  Receipt Date: 20131203
  Transmission Date: 20140711
  Serious: Yes (Congenital Anomaly)
  Sender: FDA-Public Use
  Company Number: CH-GLAXOSMITHKLINE-B0949688A

PATIENT
  Sex: Male

DRUGS (2)
  1. AXOTIDE [Suspect]
     Indication: ASTHMA
     Route: 064
  2. OXIS [Suspect]
     Indication: ASTHMA
     Route: 064

REACTIONS (3)
  - Arnold-Chiari malformation [Unknown]
  - Spina bifida [Unknown]
  - Exposure during pregnancy [Recovered/Resolved]
